FAERS Safety Report 6527823-7 (Version None)
Quarter: 2010Q1

REPORT INFORMATION
  Report Type: 
  Country: None (occurrence: None)
  Receive Date: 20100105
  Receipt Date: 20100105
  Transmission Date: 20100710
  Serious: No
  Sender: FDA-Public Use
  Company Number: None

PATIENT
  Age: 52 Year
  Sex: Male
  Weight: 83.9154 kg

DRUGS (1)
  1. ZICAM COLD REMEDY GEL NOT KNOWN NOT KNOWN [Suspect]
     Indication: NASOPHARYNGITIS
     Dosage: USED ONE TIME ONCE NASAL
     Route: 045
     Dates: start: 20090715, end: 20090715

REACTIONS (3)
  - AGEUSIA [None]
  - ANOSMIA [None]
  - BURNING SENSATION [None]
